FAERS Safety Report 12599555 (Version 2)
Quarter: 2016Q3

REPORT INFORMATION
  Report Type: Spontaneous
  Country: US (occurrence: US)
  Receive Date: 20160727
  Receipt Date: 20160731
  Transmission Date: 20161109
  Serious: No
  Sender: FDA-Public Use
  Company Number: US-009507513-1607USA010846

PATIENT
  Age: 42 Year
  Sex: Female

DRUGS (2)
  1. NEXPLANON [Suspect]
     Active Substance: ETONOGESTREL
     Dosage: 1 IMPLANT FOR 3 YEARS
     Route: 059
  2. NEXPLANON [Suspect]
     Active Substance: ETONOGESTREL
     Indication: CONTRACEPTION
     Dosage: 68 MG, 3 YEARS
     Route: 059
     Dates: start: 20160707

REACTIONS (1)
  - Medical device discomfort [Not Recovered/Not Resolved]

NARRATIVE: CASE EVENT DATE: 20160720
